FAERS Safety Report 5145540-5 (Version None)
Quarter: 2006Q4

REPORT INFORMATION
  Report Type: 
  Country: None (occurrence: None)
  Receive Date: 20061101
  Receipt Date: 20061018
  Transmission Date: 20070319
  Serious: Yes (Disabling, Other)
  Sender: FDA-Public Use
  Company Number: 2006SP004554

PATIENT
  Age: 52 Year
  Sex: Female

DRUGS (9)
  1. PEG-INTRON [Suspect]
     Indication: HEPATITIS C
     Dosage: SC
     Route: 058
     Dates: start: 20060707
  2. REBETOL [Suspect]
     Indication: HEPATITIS C
     Dosage: PO
     Route: 048
     Dates: start: 20060707
  3. HYDRALAZINE HYDROCHLORIDE/HYDROCHLOROTHIAZIDE (CON.) [Concomitant]
  4. HYDROCODONE W/APAP (CON.) [Concomitant]
  5. LIPITOR (CON) [Concomitant]
  6. PLAQUENIL (CON.) [Concomitant]
  7. ASPIRIN (E.C.) (CON.) [Concomitant]
  8. SKELAXIN (CON.) [Concomitant]
  9. TOPROL XL (CON.) [Concomitant]

REACTIONS (8)
  - ANAEMIA [None]
  - ANOREXIA [None]
  - ASTHENIA [None]
  - BURNING SENSATION [None]
  - GLOSSODYNIA [None]
  - MIDDLE INSOMNIA [None]
  - NAUSEA [None]
  - PARKINSON'S DISEASE [None]
